FAERS Safety Report 9145173 (Version 3)
Quarter: 2013Q2

REPORT INFORMATION
  Report Type: Spontaneous
  Country: US (occurrence: US)
  Receive Date: 20130307
  Receipt Date: 20130423
  Transmission Date: 20140414
  Serious: No
  Sender: FDA-Public Use
  Company Number: US-BIOGENIDEC-2013BI020421

PATIENT
  Age: 34 Year
  Sex: Female

DRUGS (1)
  1. TYSABRI [Suspect]
     Indication: MULTIPLE SCLEROSIS
     Route: 042
     Dates: start: 20130113, end: 20130226

REACTIONS (6)
  - Diplopia [Recovered/Resolved]
  - Polymenorrhoea [Recovered/Resolved]
  - Strabismus [Recovered/Resolved]
  - Hypersensitivity [Recovered/Resolved]
  - Urticaria [Recovered/Resolved]
  - Headache [Recovered/Resolved]
